FAERS Safety Report 19978638 (Version 1)
Quarter: 2021Q4

REPORT INFORMATION
  Report Type: Spontaneous
  Country: US (occurrence: US)
  Receive Date: 20211020
  Receipt Date: 20211020
  Transmission Date: 20220304
  Serious: Yes (Other)
  Sender: FDA-Public Use
  Company Number: US-GLAXOSMITHKLINE-US2021GSK215806

PATIENT
  Sex: Male

DRUGS (2)
  1. RANITIDINE [Suspect]
     Active Substance: RANITIDINE
     Indication: Abdominal discomfort
     Dosage: 300 MG
     Route: 065
     Dates: start: 198001, end: 201401
  2. RANITIDINE [Suspect]
     Active Substance: RANITIDINE
     Indication: Abdominal discomfort
     Dosage: 300 MG
     Route: 065
     Dates: start: 198001, end: 201401

REACTIONS (1)
  - Colorectal cancer [Unknown]
